FAERS Safety Report 4607117-7 (Version None)
Quarter: 2005Q1

REPORT INFORMATION
  Report Type: 
  Country: None (occurrence: None)
  Receive Date: 20050310
  Receipt Date: 20050228
  Transmission Date: 20050727
  Serious: Yes (Other)
  Sender: FDA-Public Use
  Company Number: 200510617BCC

PATIENT
  Age: 80 Year
  Sex: Male
  Weight: 92.5338 kg

DRUGS (4)
  1. ALKA-SELTZER PLUS COLD [Suspect]
     Indication: NASOPHARYNGITIS
     Dosage: 500/10/4 MG, ONCE, ORAL
     Route: 048
     Dates: start: 20050210
  2. PRILOSEC [Concomitant]
  3. PREVACID [Concomitant]
  4. VIOXX [Concomitant]

REACTIONS (2)
  - DIZZINESS [None]
  - DYSARTHRIA [None]
